FAERS Safety Report 21976251 (Version 1)
Quarter: 2023Q1

REPORT INFORMATION
  Report Type: Spontaneous
  Country: IT (occurrence: IT)
  Receive Date: 20230210
  Receipt Date: 20230210
  Transmission Date: 20230418
  Serious: Yes (Hospitalization, Other)
  Sender: FDA-Public Use
  Company Number: IT-NATCOUSA-2023-NATCOUSA-000133

PATIENT
  Age: 16 Year
  Sex: Male

DRUGS (7)
  1. AZACITIDINE [Suspect]
     Active Substance: AZACITIDINE
     Indication: Acute myeloid leukaemia
  2. VENETOCLAX [Suspect]
     Active Substance: VENETOCLAX
     Indication: Acute myeloid leukaemia
     Dosage: GRADUALLY INCREASED BY 100 MG/DAY UP TO A DOSE OF 800 MG/DAY
  3. FLUDARABINE [Suspect]
     Active Substance: FLUDARABINE PHOSPHATE
     Indication: Acute myeloid leukaemia
     Dosage: 30 MG/M2/DAY
  4. CYTARABINE [Suspect]
     Active Substance: CYTARABINE
     Indication: Acute myeloid leukaemia
     Dosage: 2,000MG/M2/DAY
  5. THIOGUANINE [Suspect]
     Active Substance: THIOGUANINE
     Indication: Acute myeloid leukaemia
     Dosage: MAINTENANCE THERAPY WITH LOW-DOSE
     Route: 048
  6. CYTARABINE [Suspect]
     Active Substance: CYTARABINE
     Indication: Acute myeloid leukaemia
     Dosage: MAINTENANCE THERAPY WITH LOW-DOSE
     Route: 042
  7. AZACITIDINE [Suspect]
     Active Substance: AZACITIDINE
     Indication: Acute myeloid leukaemia

REACTIONS (11)
  - Stenotrophomonas infection [Unknown]
  - Diarrhoea [Unknown]
  - Oedema peripheral [Unknown]
  - Urticaria [Recovered/Resolved]
  - Therapy partial responder [Unknown]
  - Stomatitis [Unknown]
  - Staphylococcal sepsis [Unknown]
  - Escherichia sepsis [Unknown]
  - Acute myeloid leukaemia [Unknown]
  - Therapy non-responder [Unknown]
  - Hypervolaemia [Unknown]
